FAERS Safety Report 6936861-1 (Version None)
Quarter: 2010Q3

REPORT INFORMATION
  Report Type: 
  Country: None (occurrence: None)
  Receive Date: 20100818
  Receipt Date: 20100805
  Transmission Date: 20110219
  Serious: Yes (Hospitalization)
  Sender: FDA-Public Use
  Company Number: 2010GW000633

PATIENT
  Age: 48 Year
  Sex: Female
  Weight: 60 kg

DRUGS (3)
  1. TAMBOCOR (FLECAINIDE ACETATE) [Suspect]
     Indication: SUICIDE ATTEMPT
     Dosage: PO
     Route: 048
  2. CITALOPRAM [Concomitant]
  3. LAMOTRIGINE [Concomitant]

REACTIONS (12)
  - BASE EXCESS INCREASED [None]
  - BLOOD GLUCOSE INCREASED [None]
  - BLOOD PH DECREASED [None]
  - BRADYCARDIA [None]
  - CARDIOGENIC SHOCK [None]
  - DRUG TOXICITY [None]
  - ELECTROCARDIOGRAM P WAVE ABNORMAL [None]
  - ELECTROCARDIOGRAM QRS COMPLEX PROLONGED [None]
  - HYPOTONIA [None]
  - INTENTIONAL OVERDOSE [None]
  - PCO2 DECREASED [None]
  - WHITE BLOOD CELL COUNT INCREASED [None]
